FAERS Safety Report 9074301 (Version 1)
Quarter: 2013Q1

REPORT INFORMATION
  Report Type: Spontaneous
  Country: US (occurrence: US)
  Receive Date: 20130128
  Receipt Date: 20130128
  Transmission Date: 20140127
  Serious: No
  Sender: FDA-Public Use
  Company Number: US-ABBOTT-12P-163-0913007-00

PATIENT
  Age: 46 Year
  Sex: Female

DRUGS (3)
  1. HUMIRA 40 MG/0.8 ML PEN [Suspect]
     Indication: COLITIS ULCERATIVE
     Dosage: LOADING DOSE OF 4 INJECTIONS
     Route: 058
     Dates: start: 20120306, end: 20120306
  2. HUMIRA 40 MG/0.8 ML PEN [Suspect]
     Route: 058
  3. PREDNISONE [Concomitant]
     Indication: COLITIS ULCERATIVE

REACTIONS (2)
  - Feeling abnormal [Recovered/Resolved]
  - Off label use [Not Recovered/Not Resolved]
